FAERS Safety Report 17786485 (Version 3)
Quarter: 2020Q2

REPORT INFORMATION
  Report Type: Spontaneous
  Country: CA (occurrence: CA)
  Receive Date: 20200514
  Receipt Date: 20200617
  Transmission Date: 20200714
  Serious: Yes (Hospitalization, Other)
  Sender: FDA-Public Use
  Company Number: CA-PFIZER INC-2020131219

PATIENT
  Age: 58 Year
  Sex: Male

DRUGS (2)
  1. SULFASALAZINE. [Concomitant]
     Active Substance: SULFASALAZINE
     Dosage: 2 G, 1X/DAY
     Dates: start: 2013
  2. XELJANZ [Suspect]
     Active Substance: TOFACITINIB CITRATE
     Indication: PSORIATIC ARTHROPATHY
     Dosage: 5 MG, 2X/DAY
     Route: 048
     Dates: start: 20200203, end: 20200511

REACTIONS (9)
  - Pneumonia [Not Recovered/Not Resolved]
  - Arthralgia [Unknown]
  - Flushing [Unknown]
  - Pain [Unknown]
  - Rheumatoid arthritis [Unknown]
  - Dizziness [Unknown]
  - Dysstasia [Unknown]
  - Malaise [Not Recovered/Not Resolved]
  - Dry throat [Unknown]
